FAERS Safety Report 4632019-X (Version None)
Quarter: 2005Q2

REPORT INFORMATION
  Report Type: 
  Country: None (occurrence: None)
  Receive Date: 20050325
  Receipt Date: 20041210
  Transmission Date: 20051028
  Serious: No
  Sender: FDA-Public Use
  Company Number: USA041183620

PATIENT
  Age: 71 Year
  Sex: Female
  Weight: 61 kg

DRUGS (2)
  1. FORTEO [Suspect]
     Indication: OSTEOPOROSIS
     Dates: start: 20041102
  2. CALCIUM WITH VITAMIN D [Concomitant]

REACTIONS (4)
  - BACK PAIN [None]
  - FATIGUE [None]
  - INCREASED APPETITE [None]
  - WEIGHT INCREASED [None]
